FAERS Safety Report 9035838 (Version 1)
Quarter: 2013Q1

REPORT INFORMATION
  Report Type: Report from Study
  Country: US (occurrence: US)
  Receive Date: 20130129
  Receipt Date: 20130129
  Transmission Date: 20140127
  Serious: No
  Sender: FDA-Public Use
  Company Number: US-ABBOTT-12P-163-0927006-00

PATIENT
  Sex: Female
  Weight: 192.95 kg

DRUGS (13)
  1. HUMIRA 40 MG/0.8 ML PEN [Suspect]
     Indication: RHEUMATOID ARTHRITIS
     Route: 058
     Dates: start: 201201
  2. HUMIRA 40 MG/0.8 ML PEN [Suspect]
     Indication: PSORIASIS
  3. HUMIRA 40 MG/0.8 ML PEN [Suspect]
     Indication: PSORIATIC ARTHROPATHY
  4. METHOTREXATE [Concomitant]
     Indication: PSORIASIS
     Dates: start: 2008
  5. VICODIN [Concomitant]
     Indication: PAIN
     Dates: start: 201107
  6. LASIX [Concomitant]
     Indication: FLUID RETENTION
     Dates: start: 201107
  7. LOVASTATIN [Concomitant]
     Indication: BLOOD CHOLESTEROL
     Dates: start: 201107
  8. PROZAC [Concomitant]
     Indication: DEPRESSION
     Dates: start: 201107
  9. PREVACID [Concomitant]
     Indication: GASTROOESOPHAGEAL REFLUX DISEASE
     Dates: start: 201107
  10. POTASSIUM [Concomitant]
     Indication: MINERAL SUPPLEMENTATION
     Dates: start: 201107
  11. FOLIC ACID [Concomitant]
     Indication: VITAMIN SUPPLEMENTATION
     Dates: start: 201107
  12. ZINC [Concomitant]
     Indication: VITAMIN SUPPLEMENTATION
     Dates: start: 201112
  13. FISH OIL [Concomitant]
     Indication: VITAMIN SUPPLEMENTATION
     Dates: start: 201112

REACTIONS (4)
  - Swelling [Not Recovered/Not Resolved]
  - Cellulitis [Not Recovered/Not Resolved]
  - Blister [Not Recovered/Not Resolved]
  - Pain in extremity [Not Recovered/Not Resolved]
